FAERS Safety Report 10576722 (Version 1)
Quarter: 2014Q4

REPORT INFORMATION
  Report Type: Spontaneous
  Country: US (occurrence: None)
  Receive Date: 20141110
  Receipt Date: 20141110
  Transmission Date: 20150529
  Serious: No
  Sender: FDA-Public Use
  Company Number: None

PATIENT
  Age: 66 Year
  Sex: Female
  Weight: 54.43 kg

DRUGS (1)
  1. BUPROPION [Suspect]
     Active Substance: BUPROPION
     Indication: DEPRESSION
     Dosage: 1 PILL
     Route: 048
     Dates: start: 20141107, end: 20141108

REACTIONS (4)
  - Body temperature decreased [None]
  - Hyperhidrosis [None]
  - Agitation [None]
  - Fatigue [None]

NARRATIVE: CASE EVENT DATE: 20141108
